FAERS Safety Report 8811923 (Version 3)
Quarter: 2012Q4

REPORT INFORMATION
  Report Type: 
  Country: US (occurrence: US)
  Receive Date: 20120927
  Receipt Date: 20121109
  Transmission Date: 20130627
  Serious: Yes (Death, Hospitalization, Other)
  Sender: FDA-Public Use
  Company Number: US-BAXTER-2012BAX017597

PATIENT
  Age: 70 Year
  Sex: Male

DRUGS (8)
  1. DIANEAL LOW CALCIUM [Suspect]
     Indication: PERITONEAL DIALYSIS
     Route: 033
     Dates: start: 20120617, end: 20121008
  2. DIANEAL LOW CALCIUM [Suspect]
     Route: 033
     Dates: start: 20120915, end: 20121008
  3. DIANEAL LOW CALCIUM [Suspect]
     Indication: PERITONEAL DIALYSIS
     Route: 033
     Dates: start: 20120617, end: 20121008
  4. DIANEAL LOW CALCIUM [Suspect]
     Route: 033
     Dates: start: 20120915, end: 20121008
  5. DIANEAL LOW CALCIUM (ULTRABAG) [Suspect]
     Indication: PERITONEAL DIALYSIS
     Route: 033
     Dates: end: 20121008
  6. DIANEAL LOW CALCIUM (ULTRABAG) [Suspect]
     Route: 033
     Dates: start: 20120915, end: 20121008
  7. DIANEAL LOW CALCIUM (ULTRABAG) [Suspect]
     Indication: PERITONEAL DIALYSIS
     Route: 033
     Dates: end: 20121008
  8. DIANEAL LOW CALCIUM (ULTRABAG) [Suspect]
     Route: 033
     Dates: start: 20120915, end: 20121008

REACTIONS (9)
  - Death [Fatal]
  - Cardiomyopathy [Recovering/Resolving]
  - Ventricular fibrillation [Recovering/Resolving]
  - Hernia [Unknown]
  - Blood magnesium decreased [Unknown]
  - Haemoglobin decreased [Unknown]
  - Ventricular tachycardia [Recovered/Resolved]
  - Electrolyte imbalance [Unknown]
  - Blood potassium decreased [Unknown]
